FAERS Safety Report 4889510-0 (Version None)
Quarter: 2006Q1

REPORT INFORMATION
  Report Type: 
  Country: None (occurrence: None)
  Receive Date: 20060120
  Receipt Date: 20060110
  Transmission Date: 20060701
  Serious: Yes (Other)
  Sender: FDA-Public Use
  Company Number: 2006007213

PATIENT

DRUGS (2)
  1. ALDACTONE [Suspect]
     Indication: ILL-DEFINED DISORDER
  2. DRUG, UNSPECIFIED (DRUG, UNSPECIFIED) [Concomitant]

REACTIONS (1)
  - PANCREATITIS ACUTE [None]
